FAERS Safety Report 5000107-4 (Version None)
Quarter: 2006Q2

REPORT INFORMATION
  Report Type: 
  Country: None (occurrence: None)
  Receive Date: 20060509
  Receipt Date: 20060425
  Transmission Date: 20061013
  Serious: Yes (Other)
  Sender: FDA-Public Use
  Company Number: GB200604003877

PATIENT
  Sex: Female

DRUGS (4)
  1. OLANZAPINE [Suspect]
     Dosage: 10 MG,
  2. MIRTAZAPINE [Concomitant]
  3. EFFEXOR [Concomitant]
  4. NIMESULIDE (NIMESULIDE) [Concomitant]

REACTIONS (2)
  - BLOOD POTASSIUM INCREASED [None]
  - RENAL TUBULAR NECROSIS [None]
